FAERS Safety Report 15485664 (Version 1)
Quarter: 2018Q4

REPORT INFORMATION
  Report Type: Not Available
  Country: US (occurrence: US)
  Receive Date: 20181010
  Receipt Date: 20181010
  Transmission Date: 20190205
  Serious: No
  Sender: FDA-Public Use
  Company Number: US-NEUROCRINE BIOSCIENCES INC.-2018NBI02850

PATIENT
  Sex: Male

DRUGS (6)
  1. IBUPROFEN. [Concomitant]
     Active Substance: IBUPROFEN
  2. ASPIRIN. [Concomitant]
     Active Substance: ASPIRIN
  3. TRAZODONE [Concomitant]
     Active Substance: TRAZODONE HYDROCHLORIDE
  4. BENZTROPINE. [Concomitant]
     Active Substance: BENZTROPINE
  5. INGREZZA [Suspect]
     Active Substance: VALBENAZINE
     Indication: TARDIVE DYSKINESIA
     Route: 048
     Dates: start: 201708
  6. DONEPEZIL. [Concomitant]
     Active Substance: DONEPEZIL

REACTIONS (1)
  - Flushing [Unknown]
